FAERS Safety Report 25979550 (Version 2)
Quarter: 2025Q4

REPORT INFORMATION
  Report Type: Spontaneous
  Country: CA (occurrence: CA)
  Receive Date: 20251030
  Receipt Date: 20251223
  Transmission Date: 20260117
  Serious: Yes (Other)
  Sender: PFIZER
  Company Number: CA-PFIZER INC-202500213532

PATIENT
  Age: 56 Year
  Sex: Male
  Weight: 62.4 kg

DRUGS (3)
  1. ABRILADA [Suspect]
     Active Substance: ADALIMUMAB-AFZB
     Indication: Colitis ulcerative
     Dosage: 1 DF, WK0=160 MG, WK2=80 MG THEN 40 MG EVERY OTHER WEEK
     Route: 058
     Dates: start: 20251015
  2. ABRILADA [Suspect]
     Active Substance: ADALIMUMAB-AFZB
     Dosage: 80 MG, WEEK 2, (1 DF, WK0=160 MG, WK2=80 MG THEN 40 MG EVERY OTHER WEEK)
     Route: 058
     Dates: start: 20251028
  3. MESALAMINE [Concomitant]
     Active Substance: MESALAMINE
     Dosage: 1 DF, 1.2G, 4 TABLETS PER DAY
     Route: 065

REACTIONS (1)
  - Influenza like illness [Unknown]

NARRATIVE: CASE EVENT DATE: 20251001
